FAERS Safety Report 6356811-9 (Version None)
Quarter: 2009Q3

REPORT INFORMATION
  Report Type: 
  Country: None (occurrence: None)
  Receive Date: 20090915
  Receipt Date: 20090911
  Transmission Date: 20100115
  Serious: Yes (Hospitalization, Other)
  Sender: FDA-Public Use
  Company Number: US-GENENTECH-289026

PATIENT
  Sex: Female
  Weight: 61 kg

DRUGS (3)
  1. BEVACIZUMAB [Suspect]
     Indication: PANCREATIC CARCINOMA METASTATIC
     Dosage: 10 MG/KG, Q2W
     Route: 042
     Dates: start: 20080918, end: 20090910
  2. GEMCITABINE [Concomitant]
     Indication: PANCREATIC CARCINOMA METASTATIC
     Dosage: UNK
     Dates: start: 20080918, end: 20090813
  3. DOCETAXEL [Concomitant]
     Indication: PANCREATIC CARCINOMA METASTATIC
     Dosage: UNK
     Dates: start: 20080918, end: 20090910

REACTIONS (1)
  - PLEURAL EFFUSION [None]
